FAERS Safety Report 7668167-X (Version None)
Quarter: 2011Q3

REPORT INFORMATION
  Report Type: 
  Country: None (occurrence: None)
  Receive Date: 20110808
  Receipt Date: 20110804
  Transmission Date: 20111222
  Serious: Yes (Other)
  Sender: FDA-Public Use
  Company Number: US-PFIZER INC-2011178612

PATIENT
  Sex: Female

DRUGS (2)
  1. XANAX [Suspect]
     Dosage: 6 MG, (3, 2MG A DAY)
     Route: 048
  2. XANAX [Suspect]
     Dosage: 8 MG, UNK
     Route: 048

REACTIONS (2)
  - AGORAPHOBIA [None]
  - ANXIETY [None]
